FAERS Safety Report 7647022-5 (Version None)
Quarter: 2011Q3

REPORT INFORMATION
  Report Type: 
  Country: None (occurrence: None)
  Receive Date: 20110801
  Receipt Date: 20110720
  Transmission Date: 20111222
  Serious: Yes (Hospitalization)
  Sender: FDA-Public Use
  Company Number: CA-JNJFOC-20110709344

PATIENT
  Sex: Male

DRUGS (9)
  1. METHOTREXATE [Concomitant]
  2. SERTRALINE HYDROCHLORIDE [Concomitant]
  3. TYLENOL-500 [Concomitant]
     Indication: PREMEDICATION
     Route: 048
  4. DILAUDID [Concomitant]
     Route: 048
  5. REMICADE [Suspect]
     Indication: CROHN'S DISEASE
     Route: 042
     Dates: start: 20071114
  6. FERROUS SULFATE TAB [Concomitant]
  7. CLONAZEPAM [Concomitant]
  8. BENADRYL [Concomitant]
     Indication: PREMEDICATION
     Route: 042
  9. SOLU-CORTEF [Concomitant]
     Indication: PREMEDICATION
     Route: 042

REACTIONS (2)
  - WEIGHT ABNORMAL [None]
  - DEHYDRATION [None]
